FAERS Safety Report 9039426 (Version 1)
Quarter: 2013Q1

REPORT INFORMATION
  Report Type: Report from Study
  Country: US (occurrence: US)
  Receive Date: 20130129
  Receipt Date: 20130129
  Transmission Date: 20140127
  Serious: No
  Sender: FDA-Public Use
  Company Number: US-ABBOTT-12P-163-0933255-00

PATIENT
  Age: 43 Year
  Sex: Female

DRUGS (4)
  1. HUMIRA 40 MG/0.8 ML PEN [Suspect]
     Indication: CROHN^S DISEASE
     Dates: start: 20120228
  2. TOPROL XL [Concomitant]
     Indication: HYPERTENSION
     Dosage: 50MG DAILY
  3. DYAZIDE [Concomitant]
     Indication: HYPERTENSION
  4. ESTRACE [Concomitant]
     Indication: HORMONE REPLACEMENT THERAPY

REACTIONS (7)
  - Malaise [Not Recovered/Not Resolved]
  - Pyrexia [Unknown]
  - Abdominal pain upper [None]
  - Nausea [Unknown]
  - Headache [Unknown]
  - Influenza like illness [Unknown]
  - Pain [Unknown]
